FAERS Safety Report 25766245 (Version 1)
Quarter: 2025Q3

REPORT INFORMATION
  Report Type: Report from Study
  Country: US (occurrence: US)
  Receive Date: 20250905
  Receipt Date: 20250905
  Transmission Date: 20251021
  Serious: No
  Sender: SUNOVION
  Company Number: US-SUMITOMO PHARMA SWITZERLAND GMBH-2025SPA011192

PATIENT
  Age: 75 Year
  Sex: Male

DRUGS (21)
  1. ORGOVYX [Suspect]
     Active Substance: RELUGOLIX
     Indication: Prostate cancer
     Route: 048
  2. ACETAMINOPHEN [Concomitant]
     Active Substance: ACETAMINOPHEN
  3. VITAMIN B COMPLEX [Concomitant]
     Active Substance: CYANOCOBALAMIN\DEXPANTHENOL\NIACINAMIDE\PYRIDOXINE HYDROCHLORIDE\RIBOFLAVIN 5^-PHOSPHATE SODIUM\THIA
  4. CALCIUM CARBONATE [Concomitant]
     Active Substance: CALCIUM CARBONATE
  5. CHLORINE DIOXIDE [Concomitant]
     Active Substance: CHLORINE DIOXIDE
  6. FENBENDAZOLE [Concomitant]
     Active Substance: FENBENDAZOLE
  7. FINASTERIDE [Concomitant]
     Active Substance: FINASTERIDE
  8. FISH OIL [Concomitant]
     Active Substance: FISH OIL
  9. IBUPROFEN [Concomitant]
     Active Substance: IBUPROFEN
  10. IVERMECTIN [Concomitant]
     Active Substance: IVERMECTIN
  11. KETOCONAZOLE [Concomitant]
     Active Substance: KETOCONAZOLE
  12. LAETRILE [Concomitant]
     Active Substance: AMYGDALIN
  13. MAGNESIUM OXIDE [Concomitant]
     Active Substance: MAGNESIUM OXIDE
  14. METRONIDAZOLE [Concomitant]
     Active Substance: METRONIDAZOLE
  15. VITAMINS [Concomitant]
     Active Substance: VITAMINS
  16. NUBEQA [Concomitant]
     Active Substance: DAROLUTAMIDE
  17. Turmeric complex [Concomitant]
  18. TAMSULOSIN [Concomitant]
     Active Substance: TAMSULOSIN
  19. VITAMIN C [Concomitant]
     Active Substance: ASCORBIC ACID
  20. VITAMIN D3 [Concomitant]
     Active Substance: CHOLECALCIFEROL
  21. ZINC [Concomitant]
     Active Substance: ZINC

REACTIONS (1)
  - Feeling abnormal [Recovered/Resolved]

NARRATIVE: CASE EVENT DATE: 20250827
